FAERS Safety Report 5559213-8 (Version None)
Quarter: 2007Q4

REPORT INFORMATION
  Report Type: 
  Country: None (occurrence: None)
  Receive Date: 20071214
  Receipt Date: 20070919
  Transmission Date: 20080405
  Serious: No
  Sender: FDA-Public Use
  Company Number: US-ABBOTT-07P-163-0418166-00

PATIENT
  Sex: Female
  Weight: 72.64 kg

DRUGS (7)
  1. HUMIRA [Suspect]
     Indication: CROHN'S DISEASE
     Route: 058
     Dates: start: 20070907, end: 20070920
  2. HUMIRA [Suspect]
     Route: 058
     Dates: start: 20070824, end: 20070906
  3. HUMIRA [Suspect]
     Route: 058
     Dates: start: 20070921
  4. ESOMEPRAZOLE MAGNESIUM [Concomitant]
     Indication: GASTROOESOPHAGEAL REFLUX DISEASE
     Route: 048
  5. ESOMEPRAZOLE MAGNESIUM [Concomitant]
     Indication: HIATUS HERNIA
  6. CALTRATE 600 +D [Concomitant]
     Indication: DRUG USE FOR UNKNOWN INDICATION
     Route: 048
  7. MULTI-VITAMIN [Concomitant]
     Indication: DRUG USE FOR UNKNOWN INDICATION
     Route: 048

REACTIONS (5)
  - NASOPHARYNGITIS [None]
  - RHINITIS [None]
  - RHINORRHOEA [None]
  - SINUS HEADACHE [None]
  - UPPER RESPIRATORY TRACT CONGESTION [None]
